FAERS Safety Report 7136118-2 (Version None)
Quarter: 2010Q4

REPORT INFORMATION
  Report Type: 
  Country: None (occurrence: None)
  Receive Date: 20101205
  Receipt Date: 20100319
  Transmission Date: 20110411
  Serious: No
  Sender: FDA-Public Use
  Company Number: US-TYCO HEALTHCARE/MALLINCKRODT-T201000878

PATIENT
  Sex: Female

DRUGS (2)
  1. TECHNETIUM TC 99M SESTAMIBI [Suspect]
     Indication: RADIOISOTOPE SCAN
     Dosage: UNK UNK, SINGLE
     Route: 042
     Dates: start: 20100310, end: 20100310
  2. ULTRA-TECHNEKOW [Suspect]
     Indication: RADIOISOTOPE SCAN
     Dosage: 27.5 MCI, SINGLE
     Route: 042
     Dates: start: 20100310, end: 20100310

REACTIONS (3)
  - DIARRHOEA [None]
  - INJECTION SITE RASH [None]
  - NAUSEA [None]
